FAERS Safety Report 7411100-6 (Version None)
Quarter: 2011Q2

REPORT INFORMATION
  Report Type: 
  Country: None (occurrence: None)
  Receive Date: 20110413
  Receipt Date: 20100202
  Transmission Date: 20111010
  Serious: No
  Sender: FDA-Public Use
  Company Number: US-BRISTOL-MYERS SQUIBB COMPANY-14949648

PATIENT
  Age: 68 Year
  Sex: Female
  Weight: 74 kg

DRUGS (5)
  1. ERBITUX [Suspect]
     Indication: NEOPLASM MALIGNANT
     Dosage: INTERRUPTED ON SEP2009.
     Dates: start: 20090101
  2. WARFARIN SODIUM [Suspect]
     Route: 048
  3. CAMPTOSAR [Suspect]
     Indication: NEOPLASM MALIGNANT
  4. FLUOROURACIL [Suspect]
     Indication: NEOPLASM MALIGNANT
  5. LEUCOVORIN [Suspect]
     Indication: NEOPLASM MALIGNANT

REACTIONS (11)
  - INTERNATIONAL NORMALISED RATIO INCREASED [None]
  - ORAL PAIN [None]
  - DERMATITIS ACNEIFORM [None]
  - GASTROENTERITIS VIRAL [None]
  - DIZZINESS POSTURAL [None]
  - COORDINATION ABNORMAL [None]
  - VISION BLURRED [None]
  - WEIGHT DECREASED [None]
  - NASAL DISCOMFORT [None]
  - HAEMATOCHEZIA [None]
  - NEUROPATHY PERIPHERAL [None]
